FAERS Safety Report 6755335-4 (Version None)
Quarter: 2010Q2

REPORT INFORMATION
  Report Type: 
  Country: None (occurrence: None)
  Receive Date: 20100524
  Receipt Date: 20100317
  Transmission Date: 20101027
  Serious: No
  Sender: FDA-Public Use
  Company Number: 009050

PATIENT
  Sex: Female
  Weight: 63.5 kg

DRUGS (2)
  1. CIMZIA [Suspect]
     Indication: RHEUMATOID ARTHRITIS
     Dosage: (400 MG SUBCUTANEOUS)
     Route: 058
     Dates: start: 20100303
  2. CELEBREX [Concomitant]

REACTIONS (4)
  - DYSGEUSIA [None]
  - INJECTION SITE PAIN [None]
  - NEPHROLITHIASIS [None]
  - TOOTHACHE [None]
